FAERS Safety Report 7638334-X (Version None)
Quarter: 2011Q3

REPORT INFORMATION
  Report Type: 
  Country: None (occurrence: None)
  Receive Date: 20110720
  Receipt Date: 20110708
  Transmission Date: 20111222
  Serious: Yes (Other)
  Sender: FDA-Public Use
  Company Number: AM-S-20110001

PATIENT
  Age: 54 Year
  Sex: Female
  Weight: 64 kg

DRUGS (4)
  1. LEVOTHYROXINE SODIUM [Concomitant]
  2. DUPHASTON [Concomitant]
  3. ESTROGEL [Suspect]
     Indication: MENOPAUSAL SYMPTOMS
     Dosage: 2 DOSAGE FORMS, 1 IN 1 D, CUTANEOUS
     Route: 003
     Dates: start: 20110405
  4. ASPIRIN [Concomitant]

REACTIONS (4)
  - SCIATICA [None]
  - APPLICATION SITE PAIN [None]
  - PAIN IN EXTREMITY [None]
  - ABDOMINAL PAIN UPPER [None]
